FAERS Safety Report 14410781 (Version 9)
Quarter: 2018Q4

REPORT INFORMATION
  Report Type: Report from Study
  Country: US (occurrence: US)
  Receive Date: 20180119
  Receipt Date: 20181113
  Transmission Date: 20190204
  Serious: Yes (Hospitalization, Other)
  Sender: FDA-Public Use
  Company Number: PHEH2018US001556

PATIENT
  Sex: Female

DRUGS (1)
  1. AZOPT [Suspect]
     Active Substance: BRINZOLAMIDE
     Indication: PRODUCT USED FOR UNKNOWN INDICATION
     Dosage: UNK
     Route: 065

REACTIONS (22)
  - Neoplasm malignant [Unknown]
  - Foot deformity [Unknown]
  - Food poisoning [Unknown]
  - Joint injury [Unknown]
  - Agitation [Unknown]
  - General physical health deterioration [Unknown]
  - Diarrhoea [Unknown]
  - Emotional distress [Unknown]
  - Fall [Unknown]
  - Malaise [Unknown]
  - Weight decreased [Unknown]
  - Cerebrovascular accident [Unknown]
  - Macular degeneration [Unknown]
  - Dysstasia [Unknown]
  - Injury [Unknown]
  - Arthropathy [Not Recovered/Not Resolved]
  - Localised infection [Unknown]
  - Glaucoma [Unknown]
  - Monoplegia [Unknown]
  - Arthritis [Unknown]
  - Mass [Unknown]
  - Hypoaesthesia [Unknown]
